FAERS Safety Report 19273977 (Version 3)
Quarter: 2021Q3

REPORT INFORMATION
  Report Type: Report from Study
  Country: None (occurrence: US)
  Receive Date: 20210519
  Receipt Date: 20210930
  Transmission Date: 20211014
  Serious: Yes (Hospitalization)
  Sender: FDA-Public Use
  Company Number: US-ABBVIE-21K-163-3907017-00

PATIENT
  Age: 93 Year
  Sex: Female

DRUGS (2)
  1. IMBRUVICA [Suspect]
     Active Substance: IBRUTINIB
     Route: 048
     Dates: start: 20210513
  2. IMBRUVICA [Suspect]
     Active Substance: IBRUTINIB
     Indication: CHRONIC LYMPHOCYTIC LEUKAEMIA
     Route: 048
     Dates: start: 20210301

REACTIONS (7)
  - Abdominal discomfort [Unknown]
  - Cardiac failure congestive [Recovering/Resolving]
  - Fatigue [Not Recovered/Not Resolved]
  - Flatulence [Recovered/Resolved]
  - Asthenia [Not Recovered/Not Resolved]
  - Dysuria [Recovered/Resolved]
  - Flatulence [Unknown]

NARRATIVE: CASE EVENT DATE: 2021
